FAERS Safety Report 7981642-3 (Version None)
Quarter: 2011Q4

REPORT INFORMATION
  Report Type: 
  Country: None (occurrence: None)
  Receive Date: 20111215
  Receipt Date: 20111206
  Transmission Date: 20120403
  Serious: Yes (Other)
  Sender: FDA-Public Use
  Company Number: IT-BRISTOL-MYERS SQUIBB COMPANY-16287526

PATIENT
  Age: 77 Year
  Sex: Female

DRUGS (5)
  1. ZOLPIDEM [Concomitant]
  2. COUMADIN [Suspect]
     Indication: PULMONARY EMBOLISM
     Dosage: 1 DF: 1 UNIT
     Route: 048
     Dates: start: 20110901, end: 20111128
  3. ESCITALOPRAM [Concomitant]
  4. MADOPAR [Concomitant]
     Dosage: 1 DF: 200MG+50MG
  5. POTASSIUM CHLORIDE [Concomitant]

REACTIONS (3)
  - HYPERTENSIVE CRISIS [None]
  - HYPOCOAGULABLE STATE [None]
  - EPISTAXIS [None]
